FAERS Safety Report 4286941-7 (Version None)
Quarter: 2004Q1

REPORT INFORMATION
  Report Type: 
  Country: None (occurrence: None)
  Receive Date: 20040205
  Receipt Date: 20040121
  Transmission Date: 20041129
  Serious: Yes (Hospitalization)
  Sender: FDA-Public Use
  Company Number: 173203

PATIENT
  Age: 52 Year
  Sex: Female

DRUGS (1)
  1. AVONEX [Suspect]
     Indication: MULTIPLE SCLEROSIS
     Dosage: 30 MCG QW IM
     Route: 030
     Dates: start: 20000101, end: 20030901

REACTIONS (12)
  - CONDITION AGGRAVATED [None]
  - CONVULSION [None]
  - DISTURBANCE IN ATTENTION [None]
  - FALL [None]
  - GASTROINTESTINAL DISORDER [None]
  - HYPOTHYROIDISM [None]
  - INJURY [None]
  - MULTIPLE SCLEROSIS [None]
  - PELVIC FRACTURE [None]
  - PHARYNGEAL NEOPLASM [None]
  - RIB FRACTURE [None]
  - SPEECH DISORDER [None]
